FAERS Safety Report 5215572-7 (Version None)
Quarter: 2007Q1

REPORT INFORMATION
  Report Type: 
  Country: None (occurrence: None)
  Receive Date: 20070123
  Receipt Date: 20070110
  Transmission Date: 20070707
  Serious: Yes (Hospitalization, Other)
  Sender: FDA-Public Use
  Company Number: DE-PURDUE-DEU_2006_0002605

PATIENT
  Age: 73 Year
  Sex: Female
  Weight: 67 kg

DRUGS (4)
  1. OXYGESIC [Suspect]
     Indication: PAIN
     Dosage: 10 MG, TID
     Route: 048
  2. ACTONEL [Concomitant]
  3. PARACETAMOL [Concomitant]
  4. METAMIZOLE [Concomitant]

REACTIONS (1)
  - INSULINOMA [None]
